FAERS Safety Report 5574629-1 (Version None)
Quarter: 2007Q4

REPORT INFORMATION
  Report Type: 
  Country: None (occurrence: None)
  Receive Date: 20071226
  Receipt Date: 20071226
  Transmission Date: 20080405
  Serious: Yes (Death)
  Sender: FDA-Public Use
  Company Number: None

PATIENT
  Age: 47 Year
  Sex: Male
  Weight: 201.3971 kg

DRUGS (5)
  1. BYETTA [Suspect]
     Indication: DIABETES MELLITUS INADEQUATE CONTROL
     Dosage: 5 MG  TWICE A DAY  SQ
     Route: 058
     Dates: start: 20070701, end: 20070905
  2. BYETTA [Suspect]
     Indication: OBESITY
     Dosage: 5 MG  TWICE A DAY  SQ
     Route: 058
     Dates: start: 20070701, end: 20070905
  3. VYTORIN [Concomitant]
  4. LISINOPRIL [Concomitant]
  5. METFORMIN HCL [Concomitant]

REACTIONS (3)
  - CHOLELITHIASIS [None]
  - PANCREATITIS ACUTE [None]
  - PANCREATITIS HAEMORRHAGIC [None]
